FAERS Safety Report 5121125-1 (Version None)
Quarter: 2006Q4

REPORT INFORMATION
  Report Type: 
  Country: None (occurrence: None)
  Receive Date: 20061005
  Receipt Date: 20060815
  Transmission Date: 20070319
  Serious: Yes (Other)
  Sender: FDA-Public Use
  Company Number: PHBS2006BR12359

PATIENT
  Age: 7 Year
  Sex: Female

DRUGS (8)
  1. ELIDEL [Suspect]
     Indication: VITILIGO
     Dosage: UNK, QD, INTERMITTENTLY
     Route: 061
     Dates: start: 20050801
  2. ELIDEL [Suspect]
     Dosage: UNK, PRN
     Route: 061
  3. PROTOPIC [Concomitant]
     Indication: VITILIGO
     Dosage: UNK, PRN
     Route: 061
  4. PROTOPIC [Concomitant]
     Dosage: UNK, PRN
     Route: 061
  5. PROTOPIC [Concomitant]
     Dosage: UNK, PRN
     Route: 061
  6. SUNSCREEN AGENTS [Concomitant]
  7. FLUTIVATE [Concomitant]
     Indication: VITILIGO
     Dosage: UNK, PRN
  8. FLUTIVATE [Concomitant]
     Dosage: UNK, BID
     Dates: start: 20060801

REACTIONS (3)
  - BASAL CELL CARCINOMA [None]
  - SKIN NEOPLASM EXCISION [None]
  - THYROID NEOPLASM [None]
